FAERS Safety Report 24458325 (Version 1)
Quarter: 2024Q4

REPORT INFORMATION
  Report Type: Report from Study
  Country: ZA (occurrence: ZA)
  Receive Date: 20241018
  Receipt Date: 20241018
  Transmission Date: 20250114
  Serious: No
  Sender: ROCHE
  Company Number: ZA-ROCHE-3523628

PATIENT
  Sex: Female

DRUGS (2)
  1. MABTHERA [Suspect]
     Active Substance: RITUXIMAB
     Indication: Rheumatoid arthritis
     Route: 041
     Dates: start: 201711, end: 202011
  2. MABTHERA [Suspect]
     Active Substance: RITUXIMAB
     Dosage: 14 DAYS
     Route: 041
     Dates: start: 202310

REACTIONS (1)
  - C-reactive protein increased [Unknown]
